FAERS Safety Report 19763318 (Version 3)
Quarter: 2021Q4

REPORT INFORMATION
  Report Type: Report from Study
  Country: JP (occurrence: JP)
  Receive Date: 20210830
  Receipt Date: 20211215
  Transmission Date: 20220303
  Serious: Yes (Disabling, Other)
  Sender: FDA-Public Use
  Company Number: JP-RECORDATI RARE DISEASES INC.-2019010439

PATIENT
  Age: 2 Day
  Sex: Male
  Weight: .516 kg

DRUGS (14)
  1. NEOPROFEN [Suspect]
     Active Substance: IBUPROFEN LYSINE
     Indication: Patent ductus arteriosus
     Dosage: 5 MILLIGRAM, QD
     Route: 042
     Dates: start: 20190426, end: 20190426
  2. CATABON LOW [Concomitant]
     Indication: Hypotension
     Dosage: UNK, UNK
     Route: 042
     Dates: start: 20190426, end: 20190426
  3. MENATETRENONE [Concomitant]
     Active Substance: MENATETRENONE
     Indication: Haemorrhage prophylaxis
     Dosage: UNK, UNK
     Route: 042
     Dates: start: 20190426, end: 20190504
  4. AMIKACIN SULFATE [Concomitant]
     Active Substance: AMIKACIN SULFATE
     Indication: Infection prophylaxis
     Dosage: UNK, UNK
     Route: 042
     Dates: start: 20190426, end: 20190428
  5. AMPICILLIN SODIUM [Concomitant]
     Active Substance: AMPICILLIN SODIUM
     Indication: Infection prophylaxis
     Dosage: UNK, UNK
     Route: 042
     Dates: start: 20190426, end: 20190429
  6. CLAFORAN GALAXY [Concomitant]
     Indication: Infection prophylaxis
     Dosage: UNK, UNK
     Route: 042
     Dates: start: 20190426, end: 20190429
  7. CALCIUM GLUCONATE [Concomitant]
     Active Substance: CALCIUM GLUCONATE
     Indication: Fluid replacement
     Dosage: UNK, UNK
     Route: 042
     Dates: start: 20190426, end: 20190427
  8. FLORID D [Concomitant]
     Indication: Infection prophylaxis
     Dosage: UNK, UNK
     Route: 048
     Dates: start: 20190426, end: 20190517
  9. MICAFUNGIN SODIUM [Concomitant]
     Active Substance: MICAFUNGIN SODIUM
     Indication: Infection prophylaxis
     Dosage: UNK, UNK
     Route: 042
     Dates: start: 20190426, end: 20190520
  10. ACOALAN [Concomitant]
     Indication: Haemorrhage prophylaxis
     Dosage: UNK, UNK
     Route: 042
     Dates: start: 20190426, end: 20190428
  11. FACTOR XIII CONCENTRATE (HUMAN) [Concomitant]
     Active Substance: FACTOR XIII CONCENTRATE (HUMAN)
     Indication: Haemorrhage prophylaxis
     Dosage: UNK, UNK
     Route: 042
     Dates: start: 20190426, end: 20190430
  12. VENOGLOBULIN IH [Concomitant]
     Active Substance: HUMAN IMMUNOGLOBULIN G
     Indication: Infection prophylaxis
     Dosage: UNK, UNK
     Route: 042
     Dates: start: 20190426, end: 20190430
  13. SURFACTEN [Concomitant]
     Indication: Neonatal respiratory distress syndrome
     Dosage: UNK, UNK
     Route: 037
     Dates: start: 20190426, end: 20190426
  14. FENTANYL [Concomitant]
     Active Substance: FENTANYL
     Indication: Haemorrhage prophylaxis
     Dosage: UNK, UNK
     Route: 042
     Dates: start: 20190426, end: 20190505

REACTIONS (3)
  - Deafness [Not Recovered/Not Resolved]
  - Intraventricular haemorrhage [Not Recovered/Not Resolved]
  - Hyperglycaemia [Recovered/Resolved]

NARRATIVE: CASE EVENT DATE: 20190430
